FAERS Safety Report 23869493 (Version 1)
Quarter: 2024Q2

REPORT INFORMATION
  Report Type: Spontaneous
  Country: CZ (occurrence: CZ)
  Receive Date: 20240517
  Receipt Date: 20240517
  Transmission Date: 20240716
  Serious: Yes (Other)
  Sender: FDA-Public Use
  Company Number: CZ-BoehringerIngelheim-2024-BI-028331

PATIENT
  Age: 57 Year
  Sex: Male

DRUGS (5)
  1. EMPAGLIFLOZIN [Suspect]
     Active Substance: EMPAGLIFLOZIN
     Indication: Product used for unknown indication
     Route: 065
  2. ATORVASTATIN [Suspect]
     Active Substance: ATORVASTATIN
     Indication: Hypolipidaemia
     Dosage: 40 MILLIGRAM, ONCE A DAY
     Route: 065
  3. METFORMIN [Suspect]
     Active Substance: METFORMIN HYDROCHLORIDE
     Indication: Diabetes mellitus
     Dosage: 100 MILLIGRAM, TWO TIMES A DAY
     Route: 065
  4. METFORMIN [Suspect]
     Active Substance: METFORMIN HYDROCHLORIDE
     Dosage: SLIGHTLY REDUCED TO 2X 850 MG
     Route: 065
  5. INSULIN GLARGINE [Suspect]
     Active Substance: INSULIN GLARGINE
     Indication: Diabetes mellitus
     Dosage: 30 UNITS, 8-10 UNITS OF A FAST-ACTING ANALOGUE
     Route: 065

REACTIONS (4)
  - Renal failure [Unknown]
  - Medication error [Unknown]
  - Hypoglycaemia [Unknown]
  - Drug ineffective [Unknown]
